FAERS Safety Report 6692653-2 (Version None)
Quarter: 2010Q2

REPORT INFORMATION
  Report Type: 
  Country: None (occurrence: None)
  Receive Date: 20100422
  Receipt Date: 20100415
  Transmission Date: 20101027
  Serious: Yes (Other)
  Sender: FDA-Public Use
  Company Number: US-PFIZER INC-2010047710

PATIENT
  Sex: Female

DRUGS (3)
  1. CAMPTOSAR [Suspect]
     Dosage: UNK
     Route: 042
  2. DEXAMETHASONE [Suspect]
     Dosage: 10 MG, UNK
  3. GLYBURIDE [Suspect]
     Indication: DIABETES MELLITUS
     Dosage: UNK
     Route: 048

REACTIONS (1)
  - BLOOD GLUCOSE INCREASED [None]
